FAERS Safety Report 18068222 (Version 1)
Quarter: 2020Q3

REPORT INFORMATION
  Report Type: Report from Study
  Country: FR (occurrence: FR)
  Receive Date: 20200724
  Receipt Date: 20200724
  Transmission Date: 20201103
  Serious: Yes (Other)
  Sender: FDA-Public Use
  Company Number: FR-BAUSCH-BL-2020-020749

PATIENT
  Age: 79 Year
  Sex: Male

DRUGS (2)
  1. VELCADE [Suspect]
     Active Substance: BORTEZOMIB
     Indication: PLASMA CELL MYELOMA
     Dosage: 2 WEEKS/CYCLE
     Route: 065
     Dates: end: 20180330
  2. DEXAMETHASONE. [Suspect]
     Active Substance: DEXAMETHASONE
     Indication: PLASMA CELL MYELOMA
     Dosage: 2 WEEKS/CYCLE
     Route: 065
     Dates: end: 20180330

REACTIONS (3)
  - Orthostatic hypotension [Unknown]
  - Tremor [Unknown]
  - Cataract [Unknown]

NARRATIVE: CASE EVENT DATE: 20180301
